FAERS Safety Report 20211732 (Version 1)
Quarter: 2021Q4

REPORT INFORMATION
  Report Type: Spontaneous
  Country: US (occurrence: None)
  Receive Date: 20211221
  Receipt Date: 20211221
  Transmission Date: 20220303
  Serious: Yes (Life-Threatening, Other)
  Sender: FDA-Public Use
  Company Number: None

PATIENT
  Age: 25 Year
  Sex: Female
  Weight: 68 kg

DRUGS (2)
  1. CASIRIVIMAB\IMDEVIMAB [Suspect]
     Active Substance: CASIRIVIMAB\IMDEVIMAB
     Indication: COVID-19
     Route: 041
     Dates: start: 20211220, end: 20211220
  2. NS 250 ML [Concomitant]

REACTIONS (11)
  - Infusion site pain [None]
  - Infusion site hypoaesthesia [None]
  - Infusion site paraesthesia [None]
  - Paraesthesia [None]
  - Palpitations [None]
  - Hyperhidrosis [None]
  - Flushing [None]
  - Erythema [None]
  - Dyspnoea [None]
  - Anxiety [None]
  - Infusion related reaction [None]

NARRATIVE: CASE EVENT DATE: 20211220
